FAERS Safety Report 22234789 (Version 1)
Quarter: 2023Q2

REPORT INFORMATION
  Report Type: Report from Study
  Country: IT (occurrence: IT)
  Receive Date: 20230420
  Receipt Date: 20230420
  Transmission Date: 20230721
  Serious: Yes (Other)
  Sender: FDA-Public Use
  Company Number: IT-SUN PHARMACEUTICAL INDUSTRIES LTD-2023RR-376961

PATIENT
  Age: 52 Year
  Sex: Female
  Weight: 72 kg

DRUGS (1)
  1. TILDRAKIZUMAB [Suspect]
     Active Substance: TILDRAKIZUMAB
     Indication: Product used for unknown indication
     Dosage: 100 MILLIGRAM, EVERY 12 WEEKS
     Route: 058
     Dates: start: 20210421

REACTIONS (1)
  - Herpes ophthalmic [Recovered/Resolved]

NARRATIVE: CASE EVENT DATE: 20221221
